FAERS Safety Report 19360110 (Version 1)
Quarter: 2021Q2

REPORT INFORMATION
  Report Type: Report from Study
  Country: CN (occurrence: CN)
  Receive Date: 20210602
  Receipt Date: 20210602
  Transmission Date: 20210717
  Serious: Yes (Hospitalization, Other)
  Sender: FDA-Public Use
  Company Number: NVSC2019CN046922

PATIENT
  Age: 69 Year
  Sex: Male
  Weight: 59 kg

DRUGS (8)
  1. METOPROLOL SUCCINATE. [Concomitant]
     Active Substance: METOPROLOL SUCCINATE
     Indication: CARDIAC FAILURE
     Dosage: 47.5 MG, UNKNOWN
     Route: 065
     Dates: start: 20210109, end: 20210113
  2. CEFTRIAXONE SODIUM. [Concomitant]
     Active Substance: CEFTRIAXONE SODIUM
     Indication: INFECTION PROPHYLAXIS
     Dosage: 1 G, Q12H
     Route: 065
     Dates: start: 20191107, end: 20191122
  3. TICAGRELOR. [Concomitant]
     Active Substance: TICAGRELOR
     Indication: PRODUCT USED FOR UNKNOWN INDICATION
     Dosage: 90 MG, UNKNOWN
     Route: 065
     Dates: start: 20210109, end: 20210113
  4. PANTOPRAZOLE SODIUM. [Concomitant]
     Active Substance: PANTOPRAZOLE SODIUM
     Indication: PROPHYLAXIS
     Dosage: 40 MG, UNKNOWN
     Route: 065
     Dates: start: 20210109, end: 20210113
  5. FUROSEMIDE. [Concomitant]
     Active Substance: FUROSEMIDE
     Indication: CARDIAC FAILURE
     Dosage: 20 MG, UNKNOWN
     Route: 065
     Dates: start: 20210109, end: 20210113
  6. ENTRESTO [Suspect]
     Active Substance: SACUBITRIL\VALSARTAN
     Indication: CARDIAC FAILURE
     Dosage: 100 MG, BID
     Route: 048
     Dates: start: 20191108, end: 20201113
  7. ASPIRIN. [Concomitant]
     Active Substance: ASPIRIN
     Indication: BLOOD THROMBIN
     Dosage: 100 MG, UNKNOWN
     Route: 065
     Dates: start: 20210109, end: 20210113
  8. DIAZEPAM. [Concomitant]
     Active Substance: DIAZEPAM
     Indication: SEDATION
     Dosage: 2.5 MG, UNKNOWN
     Route: 065
     Dates: start: 20210109, end: 20210113

REACTIONS (19)
  - Coronary artery disease [Recovering/Resolving]
  - High density lipoprotein increased [Unknown]
  - Aortic arteriosclerosis [Unknown]
  - Low density lipoprotein increased [Unknown]
  - Left ventricular end-diastolic pressure decreased [Unknown]
  - Carotid arteriosclerosis [Unknown]
  - Chronic obstructive pulmonary disease [Recovering/Resolving]
  - Tricuspid valve incompetence [Unknown]
  - Cardiac failure acute [Recovering/Resolving]
  - Chest discomfort [Recovered/Resolved]
  - Dyspnoea [Recovered/Resolved]
  - Arteriosclerosis [Unknown]
  - Tachypnoea [Recovered/Resolved]
  - Hypertension [Recovering/Resolving]
  - Mitral valve incompetence [Unknown]
  - Carotid artery disease [Unknown]
  - Left ventricular enlargement [Unknown]
  - Myocardial infarction [Recovering/Resolving]
  - Cardiac disorder [Recovering/Resolving]

NARRATIVE: CASE EVENT DATE: 20191116
